FAERS Safety Report 10382153 (Version 2)
Quarter: 2014Q4

REPORT INFORMATION
  Report Type: Spontaneous
  Country: US (occurrence: US)
  Receive Date: 20140813
  Receipt Date: 20141006
  Transmission Date: 20150528
  Serious: Yes (Other)
  Sender: FDA-Public Use
  Company Number: US-ACTAVIS-2014-17624

PATIENT
  Age: 62 Year
  Sex: Female
  Weight: 134 kg

DRUGS (7)
  1. DALIRESP [Suspect]
     Active Substance: ROFLUMILAST
     Indication: CHRONIC OBSTRUCTIVE PULMONARY DISEASE
     Dosage: 500 MCG, DAILY
     Route: 048
     Dates: start: 201404, end: 2014
  2. DALIRESP [Suspect]
     Active Substance: ROFLUMILAST
     Dosage: 500 MCG, DAILY
     Route: 048
     Dates: start: 20140811
  3. DALIRESP [Suspect]
     Active Substance: ROFLUMILAST
     Dosage: 250 MCG, DAILY
     Route: 048
     Dates: start: 201405, end: 201405
  4. DALIRESP [Suspect]
     Active Substance: ROFLUMILAST
     Dosage: 250 MCG, DAILY
     Route: 048
     Dates: start: 201406
  5. DALIRESP [Suspect]
     Active Substance: ROFLUMILAST
     Dosage: 500 MCG, DAILY
     Route: 048
     Dates: start: 201406, end: 201406
  6. DALIRESP [Suspect]
     Active Substance: ROFLUMILAST
     Dosage: UNK
  7. DOXYCYCLINE (WATSON LABORATORIES) [Suspect]
     Active Substance: DOXYCYCLINE
     Indication: PRODUCT USED FOR UNKNOWN INDICATION
     Dosage: UNK, UNKNOWN
     Route: 065

REACTIONS (8)
  - Weight decreased [Not Recovered/Not Resolved]
  - Insomnia [Recovered/Resolved]
  - Vomiting [Recovered/Resolved]
  - Diarrhoea [Recovered/Resolved]
  - Chronic obstructive pulmonary disease [Recovered/Resolved]
  - Decreased appetite [Not Recovered/Not Resolved]
  - Nausea [Recovered/Resolved]
  - Pyrexia [Recovered/Resolved]

NARRATIVE: CASE EVENT DATE: 2014
